FAERS Safety Report 13755044 (Version 1)
Quarter: 2017Q3

REPORT INFORMATION
  Report Type: Spontaneous
  Country: US (occurrence: US)
  Receive Date: 20170714
  Receipt Date: 20170714
  Transmission Date: 20171127
  Serious: Yes (Hospitalization)
  Sender: FDA-Public Use
  Company Number: US-MYLANLABS-2017M1041869

PATIENT

DRUGS (3)
  1. EPIRUBICIN [Suspect]
     Active Substance: EPIRUBICIN
     Indication: ADENOCARCINOMA GASTRIC
     Dosage: RECEIVED TWO CYCLES AND LATER DOSE WAS REDUCED BY 50%
     Route: 065
  2. CISPLATIN. [Suspect]
     Active Substance: CISPLATIN
     Indication: ADENOCARCINOMA GASTRIC
     Dosage: RECEIVED TWO CYCLES AND LATER DOSE WAS REDUCED BY 50%
     Route: 065
  3. FLUOROURACIL. [Suspect]
     Active Substance: FLUOROURACIL
     Indication: ADENOCARCINOMA GASTRIC
     Dosage: RECEIVED TWO CYCLES AND LATER DOSE WAS REDUCED BY 50%
     Route: 065

REACTIONS (2)
  - Diarrhoea [Unknown]
  - Mucosal inflammation [Unknown]
